FAERS Safety Report 25301993 (Version 1)
Quarter: 2025Q2

REPORT INFORMATION
  Report Type: Spontaneous
  Country: GB (occurrence: GB)
  Receive Date: 20250512
  Receipt Date: 20250512
  Transmission Date: 20250717
  Serious: Yes (Hospitalization)
  Sender: BRISTOL-MYERS SQUIBB COMPANY
  Company Number: GB-CELGENE-GBR-20210806786

PATIENT
  Age: 80 Year
  Sex: Male
  Weight: 84 kg

DRUGS (18)
  1. AZACITIDINE [Suspect]
     Active Substance: AZACITIDINE
     Indication: Myelodysplastic syndrome
     Route: 058
     Dates: start: 20210628
  2. VENETOCLAX [Suspect]
     Active Substance: VENETOCLAX
     Indication: Myelodysplastic syndrome
     Dosage: 400 MILLIGRAM, DAYS 1 - 14 OF EACH 28-DAY CYCLE
     Route: 048
     Dates: start: 20210628, end: 20210806
  3. VENETOCLAX [Suspect]
     Active Substance: VENETOCLAX
     Dosage: DAYS 1 - 14 OF EACH 28-DAY CYCLE
     Route: 048
     Dates: start: 20210906
  4. ALLOPURINOL [Concomitant]
     Active Substance: ALLOPURINOL
     Indication: Prophylaxis
     Dosage: 300 MILLIGRAM
     Route: 048
     Dates: start: 20210628, end: 20210725
  5. DOMPERIDONE [Concomitant]
     Active Substance: DOMPERIDONE
     Indication: Nausea
     Route: 048
     Dates: start: 20210628
  6. ISOPROPYL MYRISTATE\MINERAL OIL [Concomitant]
     Active Substance: ISOPROPYL MYRISTATE\MINERAL OIL
     Indication: Dry skin
     Route: 061
     Dates: start: 20171101
  7. CIPROFLOXACIN [Concomitant]
     Active Substance: CIPROFLOXACIN
     Indication: Infection prophylaxis
     Dosage: 1000 MILLIGRAM
     Route: 048
     Dates: start: 20210628
  8. LANSOPRAZOLE [Concomitant]
     Active Substance: LANSOPRAZOLE
     Indication: Prophylaxis
     Dosage: 30 MILLIGRAM
     Route: 048
     Dates: start: 20170223
  9. LOSARTAN POTASSIUM [Concomitant]
     Active Substance: LOSARTAN POTASSIUM
     Indication: Hypertension
     Dosage: 50 MILLIGRAM
     Route: 048
     Dates: start: 20151126
  10. SODIUM CHLORIDE [Concomitant]
     Active Substance: SODIUM CHLORIDE
     Indication: Prophylaxis
     Dosage: 10 MILLILITER
     Route: 048
     Dates: start: 20210628
  11. TAMSULOSIN [Concomitant]
     Active Substance: TAMSULOSIN
     Indication: Benign prostatic hyperplasia
     Dosage: 400 MICROGRAM
     Route: 048
     Dates: start: 20190122
  12. SIMVASTATIN [Concomitant]
     Active Substance: SIMVASTATIN
     Indication: Prophylaxis
     Dosage: 20 MILLIGRAM, NIGHTLY
     Route: 048
     Dates: start: 20151126, end: 20210626
  13. SIMVASTATIN [Concomitant]
     Active Substance: SIMVASTATIN
     Dosage: 40 MILLIGRAM
     Route: 048
     Dates: start: 20210713
  14. ACETAMINOPHEN [Concomitant]
     Active Substance: ACETAMINOPHEN
     Indication: Pain
     Route: 048
     Dates: start: 20151126
  15. ACETAMINOPHEN [Concomitant]
     Active Substance: ACETAMINOPHEN
     Indication: Febrile neutropenia
     Route: 048
     Dates: start: 20210821
  16. CARBOMER [Concomitant]
     Active Substance: CARBOMER
     Indication: Dry eye
     Route: 047
     Dates: start: 20210421
  17. Fusidin [Concomitant]
     Indication: Scrotal infection
     Route: 061
     Dates: start: 20210725
  18. DOCUSATE [Concomitant]
     Active Substance: DOCUSATE
     Indication: Constipation
     Route: 048
     Dates: start: 20210728

REACTIONS (2)
  - Epistaxis [Recovered/Resolved]
  - Tinea infection [Recovered/Resolved]

NARRATIVE: CASE EVENT DATE: 20210807
